FAERS Safety Report 4956736-7 (Version None)
Quarter: 2006Q1

REPORT INFORMATION
  Report Type: 
  Country: None (occurrence: None)
  Receive Date: 20060323
  Receipt Date: 20060310
  Transmission Date: 20060701
  Serious: Yes (Hospitalization, Other)
  Sender: FDA-Public Use
  Company Number: DE200602002036

PATIENT
  Sex: Female
  Weight: 70 kg

DRUGS (1)
  1. STRATTERA [Suspect]
     Indication: ATTENTION DEFICIT/HYPERACTIVITY DISORDER
     Dosage: 85 MG, DAILY (1/D), ORAL
     Route: 048
     Dates: start: 20050601, end: 20060210

REACTIONS (4)
  - AUTOIMMUNE DISORDER [None]
  - CONTUSION [None]
  - THROMBOCYTOPENIA [None]
  - VIRAL INFECTION [None]
